FAERS Safety Report 25096436 (Version 3)
Quarter: 2025Q1

REPORT INFORMATION
  Report Type: Spontaneous
  Country: US (occurrence: US)
  Receive Date: 20250319
  Receipt Date: 20250324
  Transmission Date: 20250408
  Serious: No
  Sender: NOVARTIS
  Company Number: US-002147023-NVSC2025US042479

PATIENT
  Sex: Female

DRUGS (1)
  1. COSENTYX [Suspect]
     Active Substance: SECUKINUMAB
     Indication: Hidradenitis
     Dosage: 300 MG, QW (LIQUID)
     Route: 058
     Dates: start: 20250225, end: 20250311

REACTIONS (2)
  - Oral herpes [Recovered/Resolved with Sequelae]
  - Glossodynia [Recovered/Resolved with Sequelae]

NARRATIVE: CASE EVENT DATE: 20250308
